FAERS Safety Report 8389645 (Version 4)
Quarter: 2013Q1

REPORT INFORMATION
  Report Type: Spontaneous
  Country: US (occurrence: US)
  Receive Date: 20120203
  Receipt Date: 20130208
  Transmission Date: 20140127
  Serious: Yes (Hospitalization, Other)
  Sender: FDA-Public Use
  Company Number: US-009507513-1202USA00217

PATIENT
  Sex: Female

DRUGS (4)
  1. FOSAMAX [Suspect]
     Indication: OSTEOPENIA
     Dosage: UNK UNK, QW
     Route: 048
     Dates: start: 2001, end: 20051213
  2. FOSAMAX [Suspect]
     Indication: OSTEOPOROSIS
  3. FOSAMAX PLUS D [Suspect]
     Indication: OSTEOPOROSIS
     Dosage: 2800 IU, QW
     Route: 048
     Dates: start: 20051214, end: 20071217
  4. ACTONEL [Suspect]
     Indication: OSTEOPENIA
     Dosage: UNK
     Route: 048
     Dates: start: 20081218

REACTIONS (26)
  - Depression [Unknown]
  - Obsessive-compulsive disorder [Unknown]
  - Dyspepsia [Unknown]
  - Fall [Unknown]
  - Breast cyst [Unknown]
  - Foot fracture [Unknown]
  - Arthritis [Unknown]
  - Tonsillar disorder [Unknown]
  - Appendix disorder [Unknown]
  - Gallbladder disorder [Unknown]
  - Drug hypersensitivity [Unknown]
  - Bronchitis [Unknown]
  - Pneumonia [Unknown]
  - Gastrooesophageal reflux disease [Unknown]
  - Irritable bowel syndrome [Unknown]
  - Diverticulum [Unknown]
  - Cholelithiasis [Unknown]
  - Urinary tract infection [Unknown]
  - Osteoarthritis [Unknown]
  - Intramedullary rod insertion [Unknown]
  - Medical device removal [Unknown]
  - Fluid retention [Unknown]
  - Local swelling [Unknown]
  - Femur fracture [Recovered/Resolved with Sequelae]
  - Femur fracture [Unknown]
  - Anaemia [Unknown]
